FAERS Safety Report 10354683 (Version 1)
Quarter: 2014Q3

REPORT INFORMATION
  Report Type: Spontaneous
  Country: FR (occurrence: FR)
  Receive Date: 20140731
  Receipt Date: 20140731
  Transmission Date: 20150326
  Serious: Yes (Other)
  Sender: FDA-Public Use
  Company Number: FR-TEVA-497338ISR

PATIENT
  Age: 49 Year
  Sex: Male

DRUGS (9)
  1. TUSSIDANE [Suspect]
     Active Substance: DEXTROMETHORPHAN HYDROBROMIDE
     Route: 048
     Dates: start: 20130205, end: 20130208
  2. BECLOMETASONE TEVA 250 MICROGRAMS/DOSE [Suspect]
     Active Substance: BECLOMETHASONE DIPROPIONATE
     Indication: INFLUENZA
     Route: 055
     Dates: start: 20130205, end: 20130208
  3. TOPLEXIL [Suspect]
     Active Substance: UNSPECIFIED INGREDIENT
     Indication: SINUSITIS
     Route: 048
     Dates: start: 20130208, end: 20130210
  4. PNEUMOREL [Suspect]
     Active Substance: FENSPIRIDE HYDROCHLORIDE
     Indication: SINUSITIS
     Route: 048
     Dates: start: 20130208, end: 20130210
  5. PIVALONE 1 POUR CENT [Suspect]
     Active Substance: TIXOCORTOL PIVALATE
     Route: 045
     Dates: start: 20130205, end: 20130208
  6. ASPEGIC [Suspect]
     Active Substance: ASPIRIN DL-LYSINE
     Indication: INFLUENZA
     Dosage: 1 OR 2 SACHET 2 OR 3 TIMES PER DAY
     Route: 048
     Dates: start: 20130205, end: 20130208
  7. PIVALONE 1 POUR CENT [Suspect]
     Active Substance: TIXOCORTOL PIVALATE
     Indication: INFLUENZA
     Route: 045
     Dates: start: 201208, end: 201208
  8. SOLUPRED 40MG [Suspect]
     Active Substance: PREDNISOLONE
     Indication: SINUSITIS
     Route: 048
     Dates: start: 20130208, end: 20130210
  9. TUSSIDANE [Suspect]
     Active Substance: DEXTROMETHORPHAN HYDROBROMIDE
     Indication: INFLUENZA
     Route: 048
     Dates: start: 201208, end: 201208

REACTIONS (2)
  - Platelet count decreased [Recovered/Resolved]
  - Purpura [Recovered/Resolved]

NARRATIVE: CASE EVENT DATE: 20130209
